FAERS Safety Report 6743104-0 (Version None)
Quarter: 2010Q2

REPORT INFORMATION
  Report Type: 
  Country: None (occurrence: None)
  Receive Date: 20100527
  Receipt Date: 20100524
  Transmission Date: 20101027
  Serious: Yes (Life-Threatening)
  Sender: FDA-Public Use
  Company Number: JP-BAYER-201012530BYL

PATIENT
  Age: 68 Year
  Sex: Male
  Weight: 56 kg

DRUGS (12)
  1. FLUDARA [Suspect]
     Indication: FOLLICLE CENTRE LYMPHOMA, FOLLICULAR GRADE I, II, III STAGE II
     Route: 048
     Dates: start: 20060904, end: 20060908
  2. FLUDARA [Suspect]
     Route: 048
     Dates: start: 20061002, end: 20061006
  3. FLUDARA [Suspect]
     Route: 048
     Dates: start: 20061030, end: 20061103
  4. FLUDARA [Suspect]
     Route: 048
     Dates: start: 20061127, end: 20061201
  5. FLUDARA [Suspect]
     Route: 048
     Dates: start: 20061225, end: 20061229
  6. FLUDARA [Suspect]
     Route: 048
     Dates: start: 20070122, end: 20070126
  7. RITUXIMAB [Concomitant]
     Indication: FOLLICLE CENTRE LYMPHOMA, FOLLICULAR GRADE I, II, III STAGE II
     Route: 041
     Dates: start: 20060904, end: 20060904
  8. RITUXIMAB [Concomitant]
     Route: 041
     Dates: start: 20061002, end: 20061002
  9. RITUXIMAB [Concomitant]
     Route: 041
     Dates: start: 20061030, end: 20061030
  10. RITUXIMAB [Concomitant]
     Route: 041
     Dates: start: 20061127, end: 20061127
  11. RITUXIMAB [Concomitant]
     Route: 041
     Dates: start: 20061225, end: 20061225
  12. RITUXIMAB [Concomitant]
     Route: 041
     Dates: start: 20070122, end: 20070122

REACTIONS (1)
  - OESOPHAGEAL CARCINOMA [None]
